FAERS Safety Report 5804107-3 (Version None)
Quarter: 2008Q3

REPORT INFORMATION
  Report Type: 
  Country: None (occurrence: None)
  Receive Date: 20080707
  Receipt Date: 20080707
  Transmission Date: 20090109
  Serious: No
  Sender: FDA-Public Use
  Company Number: None

PATIENT
  Age: 50 Year
  Sex: Male
  Weight: 94.8018 kg

DRUGS (4)
  1. LANTUS [Suspect]
     Indication: TYPE 1 DIABETES MELLITUS
     Dosage: 10 UNITS  DAILY AT BEDTIME SQ
     Route: 058
  2. NOVOLIN R [Concomitant]
  3. NOVOLIN N [Concomitant]
  4. SYMLIN [Concomitant]

REACTIONS (3)
  - BLOOD GLUCOSE DECREASED [None]
  - COLD SWEAT [None]
  - NIGHTMARE [None]
